FAERS Safety Report 5740891-5 (Version None)
Quarter: 2008Q2

REPORT INFORMATION
  Report Type: 
  Country: None (occurrence: None)
  Receive Date: 20080516
  Receipt Date: 20080509
  Transmission Date: 20081010
  Serious: Yes (Other)
  Sender: FDA-Public Use
  Company Number: TH-BOEHRINGER INGELHEIM GMBH, GERMANY-2008-DE-02763GD

PATIENT

DRUGS (4)
  1. NEVIRAPINE [Suspect]
     Indication: PROPHYLAXIS
     Dosage: 2 MG/KG
  2. NEVIRAPINE [Suspect]
     Indication: HUMAN IMMUNODEFICIENCY VIRUS TRANSMISSION
  3. ZIDOVUDINE [Suspect]
     Indication: PROPHYLAXIS
     Dosage: 2 MG/KG
  4. ZIDOVUDINE [Suspect]
     Indication: HUMAN IMMUNODEFICIENCY VIRUS TRANSMISSION

REACTIONS (2)
  - DRUG INEFFECTIVE [None]
  - HIV INFECTION [None]
